FAERS Safety Report 22195103 (Version 2)
Quarter: 2023Q2

REPORT INFORMATION
  Report Type: Spontaneous
  Country: NL (occurrence: NL)
  Receive Date: 20230411
  Receipt Date: 20230521
  Transmission Date: 20230721
  Serious: Yes (Life-Threatening, Other)
  Sender: FDA-Public Use
  Company Number: None

PATIENT
  Sex: Female
  Weight: 59 kg

DRUGS (1)
  1. AIMOVIG [Suspect]
     Active Substance: ERENUMAB-AOOE
     Indication: Migraine
     Dosage: 1 DOSAGE FORM, Q4WK
     Route: 065
     Dates: start: 20230116

REACTIONS (2)
  - Hypoaesthesia [Recovering/Resolving]
  - Peripheral coldness [Recovering/Resolving]
